FAERS Safety Report 5215333-9 (Version None)
Quarter: 2006Q4

REPORT INFORMATION
  Report Type: 
  Country: None (occurrence: None)
  Receive Date: 20061122
  Receipt Date: 20060721
  Transmission Date: 20070319
  Serious: Yes (Hospitalization, Other)
  Sender: FDA-Public Use
  Company Number: 2006078440

PATIENT
  Age: 68 Year
  Sex: Female

DRUGS (5)
  1. LIPITOR [Suspect]
     Indication: BLOOD CHOLESTEROL INCREASED
     Dosage: 20 MG (20 MG, 1 IN 1 D)
     Dates: start: 20050607, end: 20060621
  2. LIPITOR [Suspect]
     Indication: FAMILIAL RISK FACTOR
     Dosage: 20 MG (20 MG, 1 IN 1 D)
     Dates: start: 20050607, end: 20060621
  3. LIPITOR [Suspect]
     Indication: LOW DENSITY LIPOPROTEIN INCREASED
     Dosage: 20 MG (20 MG, 1 IN 1 D)
     Dates: start: 20050607, end: 20060621
  4. HYDROCHLOROTHIAZIDE [Concomitant]
  5. POTASSIUM CHLORIDE [Concomitant]

REACTIONS (5)
  - BLOOD CREATINE PHOSPHOKINASE INCREASED [None]
  - DEHYDRATION [None]
  - JAUNDICE [None]
  - MYOSITIS [None]
  - RHABDOMYOLYSIS [None]
